FAERS Safety Report 7957669-4 (Version None)
Quarter: 2011Q4

REPORT INFORMATION
  Report Type: 
  Country: None (occurrence: None)
  Receive Date: 20111205
  Receipt Date: 20111129
  Transmission Date: 20120403
  Serious: Yes (Hospitalization, Other)
  Sender: FDA-Public Use
  Company Number: US-ELI_LILLY_AND_COMPANY-US201112000140

PATIENT
  Age: 55 Year
  Sex: Female

DRUGS (3)
  1. GEMCITABINE HYDROCHLORIDE [Suspect]
     Indication: ADENOCARCINOMA PANCREAS
     Dosage: 40 MG/M2, 2/W
  2. DOCETAXEL [Concomitant]
     Dosage: UNK, UNKNOWN
  3. CAPECITABINE [Concomitant]
     Dosage: UNK, UNKNOWN

REACTIONS (1)
  - MYOSITIS [None]
